FAERS Safety Report 19126680 (Version 1)
Quarter: 2021Q2

REPORT INFORMATION
  Report Type: Spontaneous
  Country: KR (occurrence: KR)
  Receive Date: 20210412
  Receipt Date: 20210412
  Transmission Date: 20210717
  Serious: Yes (Other)
  Sender: FDA-Public Use
  Company Number: KR-PFIZER INC-2021380475

PATIENT
  Sex: Male

DRUGS (2)
  1. NEURONTIN [Suspect]
     Active Substance: GABAPENTIN
     Dosage: UNK
     Route: 048
  2. NEURONTIN [Suspect]
     Active Substance: GABAPENTIN
     Indication: LIP PAIN
     Dosage: 2 TABLETS EVERY 2 HOURS 3 TIMES IN A ROW
     Route: 048
     Dates: start: 20210313

REACTIONS (5)
  - Paralysis [Unknown]
  - Intentional product use issue [Unknown]
  - Off label use [Unknown]
  - Paraesthesia [Unknown]
  - Product prescribing error [Unknown]

NARRATIVE: CASE EVENT DATE: 2021
